FAERS Safety Report 26040397 (Version 2)
Quarter: 2025Q4

REPORT INFORMATION
  Report Type: Spontaneous
  Country: EU (occurrence: EU)
  Receive Date: 20251113
  Receipt Date: 20251210
  Transmission Date: 20260118
  Serious: Yes (Other)
  Sender: ABBVIE
  Company Number: EU-ABBVIE-6545846

PATIENT
  Sex: Male

DRUGS (1)
  1. BOTOX [Suspect]
     Active Substance: ONABOTULINUMTOXINA
     Indication: Hyperhidrosis
     Dosage: TIME INTERVAL: AS NECESSARY: TOTAL DOSES: 900-1000 UNITS
     Route: 065

REACTIONS (5)
  - Brain injury [Unknown]
  - Multiple injuries [Unknown]
  - Pelvic floor dysfunction [Unknown]
  - Spinal cord injury [Unknown]
  - Therapeutic product effect incomplete [Unknown]
